FAERS Safety Report 8104057-6 (Version None)
Quarter: 2012Q1

REPORT INFORMATION
  Report Type: 
  Country: None (occurrence: None)
  Receive Date: 20120201
  Receipt Date: 20120128
  Transmission Date: 20120608
  Serious: No
  Sender: FDA-Public Use
  Company Number: US-PFIZER INC-2012023996

PATIENT
  Sex: Female
  Weight: 90.703 kg

DRUGS (7)
  1. LEVOTHYROXINE SODIUM [Suspect]
     Indication: THYROID DISORDER
     Dosage: 75 UG, DAILY
  2. LEVOTHYROXINE SODIUM [Suspect]
     Dosage: 75 UG, DAILY
  3. ATENOLOL [Concomitant]
     Indication: CARDIOVASCULAR EVENT PROPHYLAXIS
     Dosage: UNK
  4. LIPITOR [Suspect]
     Indication: BLOOD CHOLESTEROL INCREASED
     Dosage: 20 MG, DAILY
     Dates: end: 20110101
  5. LEVOTHYROXINE SODIUM [Suspect]
     Indication: BLOOD CHOLESTEROL INCREASED
     Dosage: 20 MG, DAILY
  6. LEVOTHYROXINE SODIUM [Suspect]
     Dosage: 50 UG, DAILY
  7. LISINOPRIL [Concomitant]
     Indication: BLOOD PRESSURE ABNORMAL
     Dosage: 20 MG, DAILY

REACTIONS (3)
  - WEIGHT INCREASED [None]
  - PAIN IN EXTREMITY [None]
  - ARTHRALGIA [None]
